FAERS Safety Report 16938705 (Version 1)
Quarter: 2019Q4

REPORT INFORMATION
  Report Type: Spontaneous
  Country: US (occurrence: US)
  Receive Date: 20190828
  Receipt Date: 20190828
  Transmission Date: 20200122
  Serious: Yes (Life-Threatening)
  Sender: FDA-Public Use
  Company Number: None

PATIENT
  Age: 56 Year
  Sex: Female
  Weight: 61.23 kg

DRUGS (13)
  1. VITAMIN C [Concomitant]
     Active Substance: ASCORBIC ACID
  2. IBUPROFEN/TYLENOL [Concomitant]
  3. WOMEN^S MULTI VITAMIN [Concomitant]
  4. ALENDRONATE SODIUM. [Concomitant]
     Active Substance: ALENDRONATE SODIUM
  5. TAMOXIFIN [Concomitant]
     Active Substance: TAMOXIFEN
  6. VICKS VAPORUB [Concomitant]
     Active Substance: CAMPHOR (SYNTHETIC)\EUCALYPTUS OIL\MENTHOL
  7. PLENVU [Suspect]
     Active Substance: ASCORBIC ACID\POLYETHYLENE GLYCOL 3350\POTASSIUM CHLORIDE\SODIUM ASCORBATE\SODIUM CHLORIDE\SODIUM SULFATE
     Indication: PREOPERATIVE CARE
     Dosage: ?          OTHER FREQUENCY:5 PM AND 9 PM ;?
     Route: 048
     Dates: start: 20190818, end: 20190818
  8. LISINOPRIL. [Concomitant]
     Active Substance: LISINOPRIL
  9. FLONASE [Concomitant]
     Active Substance: FLUTICASONE PROPIONATE
  10. PLENVU [Suspect]
     Active Substance: ASCORBIC ACID\POLYETHYLENE GLYCOL 3350\POTASSIUM CHLORIDE\SODIUM ASCORBATE\SODIUM CHLORIDE\SODIUM SULFATE
     Indication: COLONOSCOPY
     Dosage: ?          OTHER FREQUENCY:5 PM AND 9 PM ;?
     Route: 048
     Dates: start: 20190818, end: 20190818
  11. XYXOL [Concomitant]
  12. VAGIFEM [Concomitant]
     Active Substance: ESTRADIOL
  13. CALCIUM [Concomitant]
     Active Substance: CALCIUM

REACTIONS (3)
  - Dizziness [None]
  - Chills [None]
  - Blood pressure increased [None]

NARRATIVE: CASE EVENT DATE: 20190818
